FAERS Safety Report 11212426 (Version 1)
Quarter: 2015Q2

REPORT INFORMATION
  Report Type: Other
  Country: US (occurrence: US)
  Receive Date: 20150623
  Receipt Date: 20150623
  Transmission Date: 20150821
  Serious: Yes (Hospitalization)
  Sender: FDA-Public Use
  Company Number: US-SHIRE-US201506303

PATIENT
  Sex: Female
  Weight: 107.94 kg

DRUGS (11)
  1. LEVOTHYROXINE [Concomitant]
     Active Substance: LEVOTHYROXINE
     Indication: PRODUCT USED FOR UNKNOWN INDICATION
     Dosage: 25 ?G (1 TABLET), 1X/DAY:QD
     Route: 048
     Dates: start: 20140402
  2. FIRAZYR [Suspect]
     Active Substance: ICATIBANT ACETATE
     Indication: HEREDITARY ANGIOEDEMA
     Dosage: 30 MG, AS REQ^D
     Route: 058
  3. CINRYZE [Suspect]
     Active Substance: HUMAN C1-ESTERASE INHIBITOR
     Indication: PRODUCT USED FOR UNKNOWN INDICATION
     Dosage: UNK (1 DOSE), UNKNOWN (AS DIRECTED)
     Route: 042
     Dates: start: 20150427
  4. VITAMIN B12 [Concomitant]
     Active Substance: CYANOCOBALAMIN
     Indication: PRODUCT USED FOR UNKNOWN INDICATION
     Dosage: UNK (1 INJECTION), 1X/DAY:QD
     Route: 058
     Dates: start: 20140402
  5. AMBIEN [Concomitant]
     Active Substance: ZOLPIDEM TARTRATE
     Indication: PRODUCT USED FOR UNKNOWN INDICATION
     Dosage: 10 MG (1 TABLET), 1X/DAY:QD (AT BEDTIME)
     Route: 048
     Dates: start: 20150427
  6. ACTOS [Concomitant]
     Active Substance: PIOGLITAZONE HYDROCHLORIDE
     Indication: PRODUCT USED FOR UNKNOWN INDICATION
     Dosage: 30 MG (1 TABLET), 1X/DAY:QD
     Dates: start: 20150427
  7. ZOLOFT [Concomitant]
     Active Substance: SERTRALINE HYDROCHLORIDE
     Indication: PRODUCT USED FOR UNKNOWN INDICATION
     Dosage: 150 MG, 1X/DAY:QD
     Route: 048
     Dates: start: 20140402
  8. XARELTO [Concomitant]
     Active Substance: RIVAROXABAN
     Indication: PRODUCT USED FOR UNKNOWN INDICATION
     Dosage: 30 MG, 1X/DAY:QD
     Route: 048
  9. REQUIP [Concomitant]
     Active Substance: ROPINIROLE HYDROCHLORIDE
     Indication: PRODUCT USED FOR UNKNOWN INDICATION
     Dosage: 1 MG (1 TABLET), 1X/DAY:QD (AT BEDTIME)
     Route: 048
     Dates: start: 20140402
  10. TRAZODONE [Concomitant]
     Active Substance: TRAZODONE HYDROCHLORIDE
     Indication: PRODUCT USED FOR UNKNOWN INDICATION
     Dosage: 250 MG, 1X/DAY:QD (AT BEDTIME)
     Route: 048
     Dates: start: 20150427
  11. KALBITOR [Concomitant]
     Active Substance: ECALLANTIDE
     Indication: PRODUCT USED FOR UNKNOWN INDICATION
     Dosage: 30 MG, AS REQ^D
     Route: 058

REACTIONS (1)
  - Hereditary angioedema [Unknown]
